FAERS Safety Report 7058257-7 (Version None)
Quarter: 2010Q4

REPORT INFORMATION
  Report Type: 
  Country: None (occurrence: None)
  Receive Date: 20101022
  Receipt Date: 20101012
  Transmission Date: 20110411
  Serious: Yes (Hospitalization)
  Sender: FDA-Public Use
  Company Number: US-JNJFOC-20100903981

PATIENT
  Sex: Female
  Weight: 81.19 kg

DRUGS (83)
  1. CISAPRIDE [Suspect]
     Indication: IMPAIRED GASTRIC EMPTYING
     Route: 048
  2. CISAPRIDE [Suspect]
     Indication: GASTROOESOPHAGEAL REFLUX DISEASE
     Route: 048
  3. PEPCID AC [Concomitant]
     Indication: GASTROOESOPHAGITIS
     Route: 048
  4. DOXYCYCLINE [Concomitant]
     Route: 065
  5. DEPAKOTE [Concomitant]
     Indication: ARTHRALGIA
     Dosage: EVERY MORNING
     Route: 065
  6. DEPAKOTE [Concomitant]
     Route: 065
  7. PRILOSEC [Concomitant]
     Route: 065
  8. CALCIUM [Concomitant]
     Indication: BONE DISORDER
     Route: 048
  9. CALCIUM [Concomitant]
     Route: 048
  10. CALCIUM [Concomitant]
     Route: 048
  11. VITAMIN D [Concomitant]
     Route: 065
  12. FIBERCON [Concomitant]
     Route: 065
  13. LOVAZA [Concomitant]
     Route: 065
  14. LOVAZA [Concomitant]
     Route: 065
  15. LIPITOR [Concomitant]
     Dosage: WITH SUPPER
     Route: 065
  16. PREMARIN [Concomitant]
     Indication: HOT FLUSH
     Dosage: 0.65
     Route: 048
  17. PREMARIN [Concomitant]
     Route: 048
  18. SYNTHROID [Concomitant]
     Indication: AUTOIMMUNE THYROIDITIS
     Route: 065
  19. SYNTHROID [Concomitant]
     Route: 065
  20. DARVOCET-N 100 [Concomitant]
     Indication: PAIN
     Dosage: AS NEEDED
     Route: 065
  21. LEVEMIR [Concomitant]
     Indication: TYPE 1 DIABETES MELLITUS
     Route: 058
  22. LEVEMIR [Concomitant]
     Route: 058
  23. LEVEMIR [Concomitant]
     Route: 058
  24. NOVOLOG [Concomitant]
     Route: 058
  25. ULTRAM [Concomitant]
     Indication: PAIN
     Route: 065
  26. HUMALOG [Concomitant]
     Indication: DIABETES MELLITUS
  27. MULTI-VITAMINS [Concomitant]
  28. VITAMIN B COMPLEX CAP [Concomitant]
     Indication: MEDICAL DIET
  29. ALL OTHER THERAPEUTIC PRODUCTS [Concomitant]
     Indication: MULTIPLE ALLERGIES
  30. BELLADONNA ALKALOIDS [Concomitant]
  31. DONNATAL [Concomitant]
     Indication: DIARRHOEA
  32. ACIDOPHILUS [Concomitant]
     Indication: DIARRHOEA
     Route: 048
  33. ACETAMINOPHEN [Concomitant]
  34. CELEBREX [Concomitant]
     Indication: ARTHRALGIA
     Route: 048
  35. GLUCAGON [Concomitant]
     Indication: HYPOGLYCAEMIA
     Dosage: PRN 5Q
  36. PRILOSEC [Concomitant]
  37. LOVAZA [Concomitant]
     Indication: PRODUCT USED FOR UNKNOWN INDICATION
  38. PROPOXYPHENE NAPSYLATE [Concomitant]
     Indication: PRODUCT USED FOR UNKNOWN INDICATION
  39. CARAFATE [Concomitant]
     Indication: GASTROOESOPHAGEAL REFLUX DISEASE
     Route: 065
  40. NEXIUM [Concomitant]
     Indication: GASTROOESOPHAGITIS
     Route: 048
  41. FISH OIL [Concomitant]
     Indication: BLOOD CHOLESTEROL INCREASED
     Route: 048
  42. NASONEX [Concomitant]
     Indication: SINUSITIS
     Route: 045
  43. TORADOL [Concomitant]
     Indication: PAIN
     Route: 048
  44. COZAAR [Concomitant]
     Indication: MICROALBUMINURIA
     Route: 048
  45. LORTAB [Concomitant]
     Indication: PAIN
     Route: 048
  46. ASPIRIN [Concomitant]
     Indication: THROMBOSIS PROPHYLAXIS
     Route: 048
  47. DOCUSATE [Concomitant]
     Indication: CONSTIPATION
     Route: 048
  48. VIBRAMYCIN [Concomitant]
     Indication: ENDODONTIC PROCEDURE
     Route: 065
  49. VIBRAMYCIN [Concomitant]
     Route: 065
  50. VIBRAMYCIN [Concomitant]
     Route: 065
  51. VIBRAMYCIN [Concomitant]
     Route: 065
  52. VIBRAMYCIN [Concomitant]
     Route: 065
  53. VIBRAMYCIN [Concomitant]
     Route: 065
  54. VIBRAMYCIN [Concomitant]
     Route: 065
  55. VIBRAMYCIN [Concomitant]
     Route: 065
  56. VIBRAMYCIN [Concomitant]
     Route: 065
  57. VIBRAMYCIN [Concomitant]
     Indication: PREMEDICATION
     Route: 065
  58. VIBRAMYCIN [Concomitant]
     Route: 065
  59. VIBRAMYCIN [Concomitant]
     Route: 065
  60. VIBRAMYCIN [Concomitant]
     Route: 065
  61. VIBRAMYCIN [Concomitant]
     Route: 065
  62. VIBRAMYCIN [Concomitant]
     Route: 065
  63. VIBRAMYCIN [Concomitant]
     Route: 065
  64. VIBRAMYCIN [Concomitant]
     Route: 065
  65. VIBRAMYCIN [Concomitant]
     Route: 065
  66. VIBRAMYCIN [Concomitant]
     Indication: SINUS HEADACHE
     Route: 065
  67. VIBRAMYCIN [Concomitant]
     Route: 065
  68. VIBRAMYCIN [Concomitant]
     Route: 065
  69. VIBRAMYCIN [Concomitant]
     Route: 065
  70. VIBRAMYCIN [Concomitant]
     Route: 065
  71. VIBRAMYCIN [Concomitant]
     Route: 065
  72. VIBRAMYCIN [Concomitant]
     Route: 065
  73. VIBRAMYCIN [Concomitant]
     Route: 065
  74. VIBRAMYCIN [Concomitant]
     Route: 065
  75. VIBRAMYCIN [Concomitant]
     Indication: BRONCHITIS
     Route: 065
  76. VIBRAMYCIN [Concomitant]
     Route: 065
  77. VIBRAMYCIN [Concomitant]
     Route: 065
  78. VIBRAMYCIN [Concomitant]
     Route: 065
  79. VIBRAMYCIN [Concomitant]
     Route: 065
  80. VIBRAMYCIN [Concomitant]
     Route: 065
  81. VIBRAMYCIN [Concomitant]
     Route: 065
  82. VIBRAMYCIN [Concomitant]
     Route: 065
  83. VIBRAMYCIN [Concomitant]
     Route: 065

REACTIONS (1)
  - CELLULITIS [None]
